FAERS Safety Report 17964916 (Version 1)
Quarter: 2020Q2

REPORT INFORMATION
  Report Type: Spontaneous
  Country: US (occurrence: US)
  Receive Date: 20200630
  Receipt Date: 20200630
  Transmission Date: 20200714
  Serious: Yes (Hospitalization)
  Sender: FDA-Public Use
  Company Number: US-SEATTLE GENETICS-2020SGN02183

PATIENT
  Sex: Female

DRUGS (2)
  1. TUKYSA [Suspect]
     Active Substance: TUCATINIB
     Indication: BREAST CANCER FEMALE
     Dosage: UNK UNK, BID
  2. DAPTOMYCIN. [Concomitant]
     Active Substance: DAPTOMYCIN

REACTIONS (4)
  - Dyspnoea [Unknown]
  - Pneumonia [Unknown]
  - Device related infection [Unknown]
  - Chest pain [Unknown]
